FAERS Safety Report 19363748 (Version 2)
Quarter: 2023Q4

REPORT INFORMATION
  Report Type: Spontaneous
  Country: IE (occurrence: IE)
  Receive Date: 20210603
  Receipt Date: 20231118
  Transmission Date: 20240110
  Serious: Yes (Life-Threatening, Hospitalization, Other)
  Sender: FDA-Public Use
  Company Number: IE-AMGEN-IRLSP2021084765

PATIENT
  Age: 64 Year
  Sex: Female

DRUGS (1)
  1. CINACALCET HYDROCHLORIDE [Suspect]
     Active Substance: CINACALCET HYDROCHLORIDE
     Indication: Hyperparathyroidism primary
     Dosage: UNK
     Route: 065

REACTIONS (3)
  - Posterior reversible encephalopathy syndrome [Recovered/Resolved]
  - Parathyroid tumour benign [Unknown]
  - Osteoporosis [Unknown]
